FAERS Safety Report 4907394-9 (Version None)
Quarter: 2006Q1

REPORT INFORMATION
  Report Type: 
  Country: None (occurrence: None)
  Receive Date: 20060208
  Receipt Date: 20060126
  Transmission Date: 20060701
  Serious: Yes (Life-Threatening)
  Sender: FDA-Public Use
  Company Number: HQWYE541427JAN06

PATIENT
  Age: 38 Year
  Sex: Female

DRUGS (5)
  1. EFECTIN           (VENLAFAXINE HYDROCHLORIDE) [Suspect]
     Indication: OVERDOSE
     Dosage: OVERDOSE AMOUN UNKNOWN
     Route: 048
     Dates: start: 20060125, end: 20060125
  2. EFECTIN           (VENLAFAXINE HYDROCHLORIDE) [Suspect]
     Indication: OVERDOSE
     Dosage: OVERDOSE AMOUN UNKNOWN
     Route: 048
     Dates: start: 20060125, end: 20060125
  3. VALPROATE SODIUM [Suspect]
     Indication: OVERDOSE
     Dosage: OVERDOSE AMOUNT UNKNOWN
     Dates: start: 20060125, end: 20060125
  4. PLEXXO   (LAMOTRIGINE) [Suspect]
     Indication: OVERDOSE
     Dosage: OVERDOSE AMOUNT UNKNOWN
  5. CLONAZEPAM [Suspect]
     Indication: OVERDOSE
     Dosage: OVERDOSE AMOUNT UNKNOWN
     Dates: start: 20060125, end: 20060125

REACTIONS (2)
  - DRUG TOXICITY [None]
  - OVERDOSE [None]
